FAERS Safety Report 6912572-3 (Version None)
Quarter: 2010Q3

REPORT INFORMATION
  Report Type: 
  Country: None (occurrence: None)
  Receive Date: 20100806
  Receipt Date: 20080730
  Transmission Date: 20110219
  Serious: Yes (Hospitalization, Other)
  Sender: FDA-Public Use
  Company Number: US-PFIZER INC-2008063841

PATIENT
  Age: 17 Year
  Sex: Male

DRUGS (3)
  1. VFEND [Suspect]
     Indication: ANTIFUNGAL PROPHYLAXIS
  2. SEPTRA [Concomitant]
  3. CHEMOTHERAPY NOS [Concomitant]

REACTIONS (1)
  - BLOOD URINE PRESENT [None]
